FAERS Safety Report 11580213 (Version 2)
Quarter: 2015Q4

REPORT INFORMATION
  Report Type: Report from Study
  Country: US (occurrence: None)
  Receive Date: 20150924
  Receipt Date: 20151109
  Transmission Date: 20160304
  Serious: Yes (Hospitalization, Other)
  Sender: FDA-Public Use
  Company Number: US-MDT-ADR-2015-01838

PATIENT
  Age: 46 Year
  Sex: Female

DRUGS (1)
  1. LIORESAL [Suspect]
     Active Substance: BACLOFEN
     Dosage: 320.2MCG/DAY

REACTIONS (5)
  - Tachycardia [None]
  - Tremor [None]
  - Drug withdrawal syndrome [None]
  - Pruritus [None]
  - Muscle rigidity [None]
